FAERS Safety Report 4314660-7 (Version None)
Quarter: 2004Q1

REPORT INFORMATION
  Report Type: 
  Country: None (occurrence: None)
  Receive Date: 20040308
  Receipt Date: 20040302
  Transmission Date: 20041129
  Serious: Yes (Death, Life-Threatening, Hospitalization, Other)
  Sender: FDA-Public Use
  Company Number: 2004004448

PATIENT
  Sex: Male

DRUGS (4)
  1. VFEND [Suspect]
     Indication: ILL-DEFINED DISORDER
     Dosage: ORAL
     Route: 048
  2. ANTIBACTERIALS FOR SYSTEMIC USE [Concomitant]
  3. LINEZOLID (LINEZOLID) [Concomitant]
  4. AMPHOTERICIN B [Concomitant]

REACTIONS (1)
  - SUBDURAL HAEMORRHAGE [None]
